FAERS Safety Report 7479105-7 (Version None)
Quarter: 2011Q2

REPORT INFORMATION
  Report Type: 
  Country: None (occurrence: None)
  Receive Date: 20110513
  Receipt Date: 20110502
  Transmission Date: 20111010
  Serious: Yes (Hospitalization)
  Sender: FDA-Public Use
  Company Number: US-JNJFOC-20110502058

PATIENT
  Sex: Male
  Weight: 25.1 kg

DRUGS (1)
  1. INFLIXIMAB, RECOMBINANT [Suspect]
     Indication: IRRITABLE BOWEL SYNDROME
     Route: 042

REACTIONS (1)
  - DIARRHOEA HAEMORRHAGIC [None]
